FAERS Safety Report 16179054 (Version 2)
Quarter: 2019Q2

REPORT INFORMATION
  Report Type: Spontaneous
  Country: US (occurrence: US)
  Receive Date: 20190410
  Receipt Date: 20190508
  Transmission Date: 20190711
  Serious: No
  Sender: FDA-Public Use
  Company Number: US-ASTRAZENECA-2019SE44202

PATIENT
  Age: 19 Year
  Sex: Female
  Weight: 77.1 kg

DRUGS (3)
  1. DEPO PROVERA IM [Concomitant]
     Indication: CONTRACEPTION
  2. SINGULAIR [Concomitant]
     Active Substance: MONTELUKAST SODIUM
     Indication: ASTHMA
  3. FASENRA [Suspect]
     Active Substance: BENRALIZUMAB
     Indication: ASTHMA
     Dosage: 30 MG, EVERY 4 WEEKS FOR THE FIRST 3 DOSES, THEN EVERY 8 WEEKS THEREAFTER
     Route: 058
     Dates: start: 20180806

REACTIONS (4)
  - Influenza like illness [Recovered/Resolved]
  - Fatigue [Recovered/Resolved]
  - Myalgia [Recovered/Resolved]
  - Nasal congestion [Recovered/Resolved]

NARRATIVE: CASE EVENT DATE: 20180806
